FAERS Safety Report 5975392-2 (Version None)
Quarter: 2008Q4

REPORT INFORMATION
  Report Type: 
  Country: None (occurrence: None)
  Receive Date: 20081202
  Receipt Date: 20080104
  Transmission Date: 20090506
  Serious: Yes (Hospitalization)
  Sender: FDA-Public Use
  Company Number: US-AMGEN-QUU259310

PATIENT
  Sex: Female

DRUGS (2)
  1. ENBREL [Suspect]
     Indication: RHEUMATOID ARTHRITIS
     Route: 058
  2. METHOTREXATE [Concomitant]

REACTIONS (6)
  - GASTROINTESTINAL INFECTION [None]
  - GINGIVAL DISORDER [None]
  - JOINT STIFFNESS [None]
  - JOINT SWELLING [None]
  - OROPHARYNGEAL PAIN [None]
  - RHINORRHOEA [None]
